FAERS Safety Report 10010024 (Version 6)
Quarter: 2018Q1

REPORT INFORMATION
  Report Type: Spontaneous
  Country: IT (occurrence: DE)
  Receive Date: 20140313
  Receipt Date: 20180319
  Transmission Date: 20180508
  Serious: Yes (Other)
  Sender: FDA-Public Use
  Company Number: DE-ABBVIE-11P-083-0855315-00

PATIENT
  Age: 56 Year
  Sex: Male

DRUGS (14)
  1. PUVA CREAM [Concomitant]
     Indication: PSORIASIS
     Dosage: 14 SESSIONS
     Route: 065
     Dates: start: 2000
  2. CLOBETASOL [Concomitant]
     Active Substance: CLOBETASOL
     Indication: PSORIASIS
     Route: 065
  3. CYCLOSPORINE A [Suspect]
     Active Substance: CYCLOSPORINE
     Indication: PSORIASIS
     Route: 065
  4. REMICADE [Suspect]
     Active Substance: INFLIXIMAB
     Indication: PSORIASIS
     Dosage: DURING WEEKS 0,2, 6, AND 14
     Route: 042
     Dates: start: 200510
  5. METHOTREXATE. [Suspect]
     Active Substance: METHOTREXATE
     Indication: PSORIASIS
     Route: 065
  6. ADALIMUMAB [Suspect]
     Active Substance: ADALIMUMAB
     Indication: PSORIASIS
     Route: 058
     Dates: start: 2007
  7. ADALIMUMAB [Suspect]
     Active Substance: ADALIMUMAB
     Indication: PSORIASIS
  8. ETANERCEPT [Suspect]
     Active Substance: ETANERCEPT
     Indication: PSORIASIS
     Route: 058
     Dates: start: 200706
  9. FUMADERM [Suspect]
     Active Substance: CALCIUM MONOETHYLFUMARATE\DIMETHYL FUMARATE\MAGNESIUM MONOETHYLFUMARATE\ZINC MONOETHYLFUMARATE
     Indication: PSORIASIS
     Route: 065
     Dates: end: 2005
  10. NEOTIGASON [Suspect]
     Active Substance: ACITRETIN
     Indication: PSORIASIS
     Route: 065
  11. UVB [Concomitant]
     Indication: PSORIASIS
     Dosage: 27 SESSIONS
     Route: 065
     Dates: start: 200504, end: 200505
  12. CALCIPOTRIOL [Concomitant]
     Active Substance: CALCIPOTRIENE
     Indication: PSORIASIS
     Route: 061
     Dates: start: 1993
  13. CALCIPOTRIOL [Concomitant]
     Active Substance: CALCIPOTRIENE
     Indication: PSORIASIS
  14. REMICADE [Suspect]
     Active Substance: INFLIXIMAB
     Dosage: 6 INFUSIONS AT 8 WEEKS INTERVAL
     Route: 042

REACTIONS (6)
  - Malignant melanoma stage I [Recovered/Resolved]
  - Hyperkeratosis [Unknown]
  - Keratoacanthoma [Not Recovered/Not Resolved]
  - Keratoacanthoma [Recovering/Resolving]
  - Blood pressure increased [Unknown]
  - Therapy non-responder [Unknown]

NARRATIVE: CASE EVENT DATE: 200805
